FAERS Safety Report 7416917-X (Version None)
Quarter: 2011Q2

REPORT INFORMATION
  Report Type: 
  Country: None (occurrence: None)
  Receive Date: 20110408
  Receipt Date: 20110330
  Transmission Date: 20111010
  Serious: Yes (Hospitalization, Other)
  Sender: FDA-Public Use
  Company Number: 201110044

PATIENT
  Sex: Male

DRUGS (1)
  1. LIORESAL [Suspect]
     Indication: MUSCLE SPASTICITY
     Dosage: MCG, DAILY, INTRATHECAL
     Route: 037

REACTIONS (11)
  - MENINGITIS [None]
  - HYPERTONIA [None]
  - FOAMING AT MOUTH [None]
  - GRIMACING [None]
  - HYPERHIDROSIS [None]
  - TREMOR [None]
  - MYDRIASIS [None]
  - AUTONOMIC NERVOUS SYSTEM IMBALANCE [None]
  - HEART RATE INCREASED [None]
  - URINARY INCONTINENCE [None]
  - FLUSHING [None]
